FAERS Safety Report 9584096 (Version 1)
Quarter: 2013Q4

REPORT INFORMATION
  Report Type: Spontaneous
  Country: US (occurrence: US)
  Receive Date: 20131002
  Receipt Date: 20131002
  Transmission Date: 20140711
  Serious: No
  Sender: FDA-Public Use
  Company Number: US-AMGEN-USASP2013051147

PATIENT
  Age: 55 Year
  Sex: Female
  Weight: 149.66 kg

DRUGS (12)
  1. ENBREL [Suspect]
     Indication: PRODUCT USED FOR UNKNOWN INDICATION
     Dosage: 50 MG, 2 TIMES/WK
     Route: 058
  2. AMLODIPINE [Concomitant]
     Dosage: 5 MG, UNK
  3. FUROSEMIDE [Concomitant]
     Dosage: 20 MG, UNK
  4. PANTOPRAZOLE [Concomitant]
     Dosage: 20 MG, UNK
  5. ATENOLOL [Concomitant]
     Dosage: 25 MG, UNK
  6. WELCHOL [Concomitant]
     Dosage: 625 MG, UNK
  7. ZETIA [Concomitant]
     Dosage: 10 MG, UNK
  8. FISH OIL [Concomitant]
     Dosage: UNK
  9. ASA [Concomitant]
     Dosage: 81 MG, UNK
  10. SUPER B COMPL [Concomitant]
     Dosage: UNK
  11. FEXOFENADINE [Concomitant]
     Dosage: 30 MG, UNK
  12. AMOXICILLIN [Concomitant]
     Dosage: 250 MG, UNK

REACTIONS (1)
  - Local swelling [Unknown]
